FAERS Safety Report 10630495 (Version 1)
Quarter: 2014Q4

REPORT INFORMATION
  Report Type: Spontaneous
  Country: US (occurrence: US)
  Receive Date: 20141205
  Receipt Date: 20141205
  Transmission Date: 20150529
  Serious: No
  Sender: FDA-Public Use
  Company Number: US-BRISTOL-MYERS SQUIBB COMPANY-21324900

PATIENT
  Age: 64 Year
  Sex: Male
  Weight: 126.98 kg

DRUGS (4)
  1. LISINOPRIL. [Concomitant]
     Active Substance: LISINOPRIL
  2. METFORMIN [Concomitant]
     Active Substance: METFORMIN HYDROCHLORIDE
  3. SYMLIN [Suspect]
     Active Substance: PRAMLINTIDE ACETATE
     Dosage: 3YEAR ONGOING
     Route: 058
  4. HUMULIN NOS [Concomitant]
     Active Substance: INSULIN HUMAN
     Dosage: R U/500 INSULIN

REACTIONS (2)
  - Road traffic accident [Unknown]
  - Blood glucose decreased [Unknown]
